FAERS Safety Report 6597698-9 (Version None)
Quarter: 2010Q1

REPORT INFORMATION
  Report Type: 
  Country: None (occurrence: None)
  Receive Date: 20100223
  Receipt Date: 20100208
  Transmission Date: 20100710
  Serious: Yes (Disabling)
  Sender: FDA-Public Use
  Company Number: DE-GENENTECH-298224

PATIENT
  Sex: Male

DRUGS (4)
  1. RITUXIMAB [Suspect]
     Indication: B-CELL LYMPHOMA
     Dosage: 375 MG/M2, Q28D
     Route: 042
     Dates: start: 20010701
  2. MITOZANTRONE [Suspect]
     Indication: B-CELL LYMPHOMA
     Dosage: 8 MG/M2, UNK
     Route: 042
     Dates: start: 20010701
  3. CHLORAMBUCIL [Suspect]
     Indication: B-CELL LYMPHOMA
     Dosage: 3 MG/M2, UNK
     Route: 042
     Dates: start: 20010701
  4. PREDNISOLONE [Suspect]
     Indication: B-CELL LYMPHOMA
     Dosage: 25 MG/M2, UNK
     Route: 048
     Dates: start: 20010701, end: 20020201

REACTIONS (2)
  - ATRIAL FIBRILLATION [None]
  - CARDIOMYOPATHY [None]
